FAERS Safety Report 8973202 (Version 1)
Quarter: 2012Q4

REPORT INFORMATION
  Report Type: 
  Country: US (occurrence: US)
  Receive Date: 20121219
  Receipt Date: 20121219
  Transmission Date: 20130627
  Serious: Yes (Other)
  Sender: FDA-Public Use
  Company Number: US-AMGEN-USASP2012081374

PATIENT
  Age: 33 Year
  Sex: Female

DRUGS (1)
  1. ENBREL [Suspect]
     Indication: RHEUMATOID ARTHRITIS
     Dosage: UNK
     Dates: start: 1999

REACTIONS (3)
  - Abortion spontaneous [Recovered/Resolved]
  - Rheumatoid arthritis [Recovered/Resolved]
  - Uterine dilation and curettage [Recovered/Resolved]
